FAERS Safety Report 5721152-7 (Version None)
Quarter: 2008Q2

REPORT INFORMATION
  Report Type: 
  Country: None (occurrence: None)
  Receive Date: 20080429
  Receipt Date: 20080422
  Transmission Date: 20081010
  Serious: Yes (Other)
  Sender: FDA-Public Use
  Company Number: A0725166A

PATIENT
  Age: 76 Year
  Sex: Female

DRUGS (8)
  1. ADVAIR HFA [Suspect]
     Indication: DRUG USE FOR UNKNOWN INDICATION
     Route: 055
  2. MIRALAX [Suspect]
     Indication: FREQUENT BOWEL MOVEMENTS
     Route: 048
     Dates: start: 20080223, end: 20080227
  3. SPIRIVA [Suspect]
     Indication: DRUG USE FOR UNKNOWN INDICATION
     Route: 065
  4. LEXAPRO [Concomitant]
  5. SYNTHROID [Concomitant]
  6. GAS X [Concomitant]
  7. UNSPECIFIED MEDICATION [Concomitant]
  8. NAPROSYN [Concomitant]

REACTIONS (12)
  - ABDOMINAL DISCOMFORT [None]
  - ABDOMINAL DISTENSION [None]
  - ADVERSE EVENT [None]
  - CONSTIPATION [None]
  - DRUG INEFFECTIVE [None]
  - DYSPNOEA [None]
  - ERUCTATION [None]
  - ILL-DEFINED DISORDER [None]
  - OEDEMA MOUTH [None]
  - OESOPHAGEAL DISORDER [None]
  - STOMATITIS [None]
  - SWOLLEN TONGUE [None]
